FAERS Safety Report 13743653 (Version 9)
Quarter: 2017Q4

REPORT INFORMATION
  Report Type: Report from Study
  Country: EG (occurrence: EG)
  Receive Date: 20170711
  Receipt Date: 20171024
  Transmission Date: 20180320
  Serious: Yes (Death, Life-Threatening, Hospitalization, Disabling, Other)
  Sender: FDA-Public Use
  Company Number: EG-B.I. PHARMACEUTICALS,INC./RIDGEFIELD-2017-BI-038122

PATIENT
  Age: 56 Year
  Sex: Female
  Weight: 75 kg

DRUGS (13)
  1. VITAMIN B12 [Concomitant]
     Active Substance: CYANOCOBALAMIN
     Indication: PROPHYLAXIS
     Route: 065
     Dates: start: 20170218
  2. PLACEBO [Suspect]
     Active Substance: UNSPECIFIED INGREDIENT
     Indication: EPITHELIOID MESOTHELIOMA
     Route: 048
     Dates: start: 20170310
  3. MEROVIT [Concomitant]
     Indication: NEUROPATHY PERIPHERAL
     Dosage: TOTAL DAILY DOSE 500
     Route: 065
     Dates: start: 20170621
  4. FOLIC ACID. [Concomitant]
     Active Substance: FOLIC ACID
     Indication: PROPHYLAXIS
     Route: 048
     Dates: start: 20170218
  5. TRAMADOL. [Concomitant]
     Active Substance: TRAMADOL
     Indication: PAIN
     Dosage: UNIT AND DAILY DOSE: 400
     Route: 065
     Dates: start: 20170218
  6. CISPLATIN. [Suspect]
     Active Substance: CISPLATIN
     Dosage: 75MG/M2
     Route: 042
  7. CISPLATIN. [Suspect]
     Active Substance: CISPLATIN
     Dosage: 56.25MG/M2
     Route: 042
  8. DEXAMETHAZONE [Concomitant]
     Active Substance: DEXAMETHASONE
     Indication: PROPHYLAXIS
     Route: 065
     Dates: start: 20170308
  9. SPASMODIGEN [Concomitant]
     Indication: PAIN
     Route: 065
     Dates: start: 20170310
  10. DYSFLACY [Concomitant]
     Indication: PRODUCT USED FOR UNKNOWN INDICATION
     Dosage: START DATE 10MAR
     Route: 065
  11. ALIMTA [Suspect]
     Active Substance: PEMETREXED DISODIUM
     Indication: EPITHELIOID MESOTHELIOMA
     Dosage: TOTAL DAILY DOSE: 9 25
     Route: 042
     Dates: start: 20170309, end: 20170621
  12. CISPLATIN. [Suspect]
     Active Substance: CISPLATIN
     Indication: EPITHELIOID MESOTHELIOMA
     Route: 042
     Dates: start: 20170309, end: 20170621
  13. GAPTIN [Concomitant]
     Indication: NEUROPATHY PERIPHERAL
     Route: 065
     Dates: start: 20170621

REACTIONS (4)
  - Pneumonia [Fatal]
  - Peripheral motor neuropathy [Fatal]
  - Spinal cord compression [Fatal]
  - Muscular weakness [Recovered/Resolved with Sequelae]

NARRATIVE: CASE EVENT DATE: 20170621
